FAERS Safety Report 16497487 (Version 3)
Quarter: 2019Q4

REPORT INFORMATION
  Report Type: Spontaneous
  Country: AU (occurrence: AU)
  Receive Date: 20190628
  Receipt Date: 20191230
  Transmission Date: 20200122
  Serious: Yes (Hospitalization, Other)
  Sender: FDA-Public Use
  Company Number: AU-MYLANLABS-2019M1058814

PATIENT
  Sex: Male

DRUGS (3)
  1. CLOZARIL [Suspect]
     Active Substance: CLOZAPINE
     Dosage: 400 MILLIGRAM
     Route: 048
     Dates: start: 20190401
  2. CLOZARIL [Suspect]
     Active Substance: CLOZAPINE
     Indication: SCHIZOPHRENIA
     Dosage: 275 MILLIGRAM
     Route: 048
     Dates: start: 20190401, end: 20190924
  3. METHAMPHETAMINE                    /00069101/ [Suspect]
     Active Substance: METHAMPHETAMINE
     Indication: PRODUCT USED FOR UNKNOWN INDICATION
     Dosage: UNK

REACTIONS (13)
  - Mental disorder [Unknown]
  - Blood creatine phosphokinase increased [Recovering/Resolving]
  - Head injury [Unknown]
  - White blood cell count increased [Unknown]
  - Alcoholism [Unknown]
  - Psychomotor hyperactivity [Unknown]
  - Troponin increased [Recovered/Resolved]
  - C-reactive protein increased [Unknown]
  - Neutrophil count increased [Unknown]
  - Product dose omission [Unknown]
  - Substance use [Unknown]
  - Agitation [Unknown]
  - Physical assault [Unknown]

NARRATIVE: CASE EVENT DATE: 2019
